FAERS Safety Report 4682376-3 (Version None)
Quarter: 2005Q2

REPORT INFORMATION
  Report Type: 
  Country: None (occurrence: None)
  Receive Date: 20050602
  Receipt Date: 20050602
  Transmission Date: 20051028
  Serious: No
  Sender: FDA-Public Use
  Company Number: None

PATIENT
  Age: 20 Year
  Sex: Male

DRUGS (2)
  1. HALDOL [Suspect]
     Indication: SCHIZOPHRENIA
     Dosage: 5 MG PO Q 12 HR
     Route: 048
     Dates: start: 20050520, end: 20050524
  2. HALDOL [Suspect]
     Indication: SCHIZOPHRENIA
     Dosage: 2 MG PO Q 1 HR PRN
     Route: 048
     Dates: start: 20050520, end: 20050524

REACTIONS (2)
  - DYSTONIA [None]
  - JAW DISORDER [None]
